FAERS Safety Report 8030187-3 (Version None)
Quarter: 2012Q1

REPORT INFORMATION
  Report Type: 
  Country: None (occurrence: None)
  Receive Date: 20120109
  Receipt Date: 20120104
  Transmission Date: 20120608
  Serious: Yes (Death, Other)
  Sender: FDA-Public Use
  Company Number: US-BAYER-200940675NA

PATIENT
  Age: 47 Year
  Sex: Male
  Weight: 113 kg

DRUGS (8)
  1. TRASYLOL [Suspect]
     Indication: ARTERIAL RUPTURE
     Route: 042
     Dates: start: 20030601
  2. NORVASC [Concomitant]
     Dosage: 10 MG, QD
     Route: 048
     Dates: start: 20020924
  3. CATAPRES [Concomitant]
     Dosage: 0.3 MG, ONCE WEEKLY
     Route: 061
     Dates: start: 20020924
  4. INDOMETHACIN [Concomitant]
     Dosage: 50 MG, TID
     Route: 048
     Dates: start: 19990219
  5. LASIX [Concomitant]
     Dosage: 80 MG, BID
     Route: 048
     Dates: start: 20020924
  6. ZESTRIL [Concomitant]
     Dosage: 20 MG, QD
     Route: 048
     Dates: start: 20020924
  7. TOPROL-XL [Concomitant]
     Dosage: 50 MG, QD
     Route: 048
     Dates: start: 20000313
  8. CELEBREX [Concomitant]
     Indication: ARTHRALGIA
     Dosage: 200 MG, QD
     Route: 048
     Dates: start: 20000313

REACTIONS (13)
  - ANXIETY [None]
  - MULTI-ORGAN FAILURE [None]
  - FEAR [None]
  - INJURY [None]
  - UNEVALUABLE EVENT [None]
  - STRESS [None]
  - PAIN [None]
  - ANHEDONIA [None]
  - EMOTIONAL DISTRESS [None]
  - DEATH [None]
  - RENAL FAILURE [None]
  - RENAL IMPAIRMENT [None]
  - RENAL INJURY [None]
